FAERS Safety Report 8959202 (Version 3)
Quarter: 2013Q1

REPORT INFORMATION
  Report Type: Spontaneous
  Country: US (occurrence: US)
  Receive Date: 20121212
  Receipt Date: 20130211
  Transmission Date: 20140127
  Serious: Yes (Hospitalization)
  Sender: FDA-Public Use
  Company Number: US-BIOGENIDEC-2012BI059042

PATIENT
  Age: 36 Year
  Sex: Female

DRUGS (1)
  1. TYSABRI [Suspect]
     Indication: MULTIPLE SCLEROSIS
     Route: 042
     Dates: start: 20110114, end: 20120809

REACTIONS (7)
  - Intrathecal pump insertion [Unknown]
  - Fall [Unknown]
  - Post procedural infection [Recovered/Resolved]
  - Medical device change [Recovered/Resolved]
  - Medical device complication [Recovered/Resolved]
  - Abasia [Recovered/Resolved]
  - Incontinence [Not Recovered/Not Resolved]
